FAERS Safety Report 6347273-6 (Version None)
Quarter: 2009Q3

REPORT INFORMATION
  Report Type: 
  Country: None (occurrence: None)
  Receive Date: 20090910
  Receipt Date: 20090908
  Transmission Date: 20100115
  Serious: Yes (Other)
  Sender: FDA-Public Use
  Company Number: DE-BRISTOL-MYERS SQUIBB COMPANY-14758213

PATIENT
  Age: 34 Year
  Sex: Female
  Weight: 48 kg

DRUGS (2)
  1. BARACLUDE [Suspect]
     Indication: HEPATITIS B
     Route: 048
     Dates: start: 20080101
  2. HEPSERA [Concomitant]
     Indication: HEPATITIS B
     Route: 048
     Dates: start: 20070301

REACTIONS (1)
  - RECTAL CANCER [None]
